FAERS Safety Report 7549123-9 (Version None)
Quarter: 2011Q2

REPORT INFORMATION
  Report Type: 
  Country: None (occurrence: None)
  Receive Date: 20110615
  Receipt Date: 20110603
  Transmission Date: 20111010
  Serious: Yes (Other)
  Sender: FDA-Public Use
  Company Number: JP-GENZYME-RENA-1001200

PATIENT
  Age: 60 Year
  Sex: Male

DRUGS (2)
  1. RENAGEL [Suspect]
  2. RENAGEL [Suspect]
     Indication: HYPERPHOSPHATAEMIA
     Route: 048

REACTIONS (1)
  - PEMPHIGUS [None]
